FAERS Safety Report 4527798-6 (Version None)
Quarter: 2004Q4

REPORT INFORMATION
  Report Type: 
  Country: None (occurrence: None)
  Receive Date: 20041215
  Receipt Date: 20041129
  Transmission Date: 20050328
  Serious: Yes (Hospitalization)
  Sender: FDA-Public Use
  Company Number: JP-GLAXOSMITHKLINE-B0358647A

PATIENT
  Age: 72 Year
  Sex: Male
  Weight: 56 kg

DRUGS (2)
  1. PAXIL [Suspect]
     Indication: DEPRESSION
     Dosage: 10MG PER DAY
     Route: 048
     Dates: start: 20041120, end: 20041121
  2. ROHYPNOL [Suspect]
     Indication: INSOMNIA
     Dosage: 1MG PER DAY
     Route: 048
     Dates: start: 20041120, end: 20041121

REACTIONS (8)
  - C-REACTIVE PROTEIN INCREASED [None]
  - DELIRIUM [None]
  - DIET REFUSAL [None]
  - EXCITABILITY [None]
  - INCOHERENT [None]
  - INSOMNIA [None]
  - SOLILOQUY [None]
  - SOMNOLENCE [None]
